FAERS Safety Report 5873681-3 (Version None)
Quarter: 2008Q3

REPORT INFORMATION
  Report Type: 
  Country: None (occurrence: None)
  Receive Date: 20080908
  Receipt Date: 20080903
  Transmission Date: 20090109
  Serious: Yes (Death)
  Sender: FDA-Public Use
  Company Number: A0746377A

PATIENT
  Age: 75 Year
  Sex: Female
  Weight: 60 kg

DRUGS (1)
  1. SERETIDE DISKUS [Suspect]
     Route: 055
     Dates: start: 20060801, end: 20080719

REACTIONS (1)
  - SEPTIC SHOCK [None]
